FAERS Safety Report 7134202-0 (Version None)
Quarter: 2010Q4

REPORT INFORMATION
  Report Type: 
  Country: None (occurrence: None)
  Receive Date: 20101117
  Receipt Date: 20101105
  Transmission Date: 20110411
  Serious: Yes (Hospitalization)
  Sender: FDA-Public Use
  Company Number: 2010-3489

PATIENT
  Age: 59 Year
  Sex: Female
  Weight: 45 kg

DRUGS (7)
  1. DYSPORT [Suspect]
     Indication: MUSCLE SPASTICITY
     Dosage: SEE IMAGE
     Route: 030
     Dates: start: 20060420, end: 20060420
  2. DYSPORT [Suspect]
     Indication: MUSCLE SPASTICITY
     Dosage: SEE IMAGE
     Route: 030
     Dates: start: 20060718, end: 20060718
  3. DYSPORT [Suspect]
     Indication: MUSCLE SPASTICITY
     Dosage: SEE IMAGE
     Route: 030
     Dates: start: 20061206, end: 20061206
  4. DYSPORT [Suspect]
     Indication: MUSCLE SPASTICITY
     Dosage: SEE IMAGE
     Route: 030
     Dates: start: 20100818, end: 20100818
  5. RILUTEK [Suspect]
  6. LIORESAL [Concomitant]
  7. TOCOPHEROL CONCENTRATE CAP [Concomitant]

REACTIONS (3)
  - MUSCULAR WEAKNESS [None]
  - NECK PAIN [None]
  - UNEVALUABLE EVENT [None]
